FAERS Safety Report 8968138 (Version 1)
Quarter: 2012Q4

REPORT INFORMATION
  Report Type: Spontaneous
  Country: US (occurrence: None)
  Receive Date: 20121214
  Receipt Date: 20121214
  Transmission Date: 20130627
  Serious: Yes (Life-Threatening, Hospitalization, Other)
  Sender: FDA-Public Use
  Company Number: None

PATIENT

DRUGS (2)
  1. VANCOMYCIN [Suspect]
     Dosage: 1200MG Q12HR IV
     Route: 042
     Dates: start: 20120419, end: 20120423
  2. OXACILLIN [Suspect]
     Dosage: 2000MG Q4HR IV
     Route: 042
     Dates: start: 20120421, end: 20120424

REACTIONS (1)
  - Renal failure acute [None]
